FAERS Safety Report 4455713-2 (Version None)
Quarter: 2004Q3

REPORT INFORMATION
  Report Type: 
  Country: None (occurrence: None)
  Receive Date: 20040917
  Receipt Date: 20040826
  Transmission Date: 20050211
  Serious: Yes (Other)
  Sender: FDA-Public Use
  Company Number: USA040876608

PATIENT
  Sex: Female

DRUGS (1)
  1. SYMBAX-OLANZAPINE 6MG / FLUOXETINE 25MG(OLANZAPIN [Suspect]

REACTIONS (1)
  - LOSS OF CONSCIOUSNESS [None]
